FAERS Safety Report 17554332 (Version 3)
Quarter: 2020Q2

REPORT INFORMATION
  Report Type: Spontaneous
  Country: JP (occurrence: JP)
  Receive Date: 20200318
  Receipt Date: 20200410
  Transmission Date: 20200713
  Serious: Yes (Hospitalization, Other)
  Sender: FDA-Public Use
  Company Number: JP-GLAXOSMITHKLINE-JP2020JPN028186

PATIENT
  Age: 13 Year
  Sex: Male
  Weight: 34 kg

DRUGS (6)
  1. RELENZA [Suspect]
     Active Substance: ZANAMIVIR
     Indication: INFLUENZA
     Dosage: 10 MG, BID
     Route: 055
     Dates: start: 20200213, end: 20200213
  2. MUCODYNE [Concomitant]
     Active Substance: CARBOCYSTEINE
     Indication: UPPER RESPIRATORY TRACT INFLAMMATION
     Dosage: 500 MG, TID
     Dates: start: 20200213, end: 20200213
  3. CALONAL [Concomitant]
     Active Substance: ACETAMINOPHEN
     Indication: UPPER RESPIRATORY TRACT INFLAMMATION
     Dosage: 300 MG, PRN
     Dates: start: 20200213, end: 20200213
  4. CALONAL [Concomitant]
     Active Substance: ACETAMINOPHEN
     Indication: INFLUENZA
  5. MEDICON (DEXTROMETHORPHAN HYDROBROMIDE HYDRATE) [Concomitant]
     Indication: UPPER RESPIRATORY TRACT INFLAMMATION
     Dosage: 15 MG, TID
     Dates: start: 20200213, end: 20200213
  6. CETIRIZINE [Concomitant]
     Active Substance: CETIRIZINE HYDROCHLORIDE
     Indication: RHINITIS ALLERGIC
     Dosage: 10 MG, QD
     Dates: start: 20200213, end: 20200213

REACTIONS (13)
  - Thoracic vertebral fracture [Not Recovered/Not Resolved]
  - Abnormal behaviour [Unknown]
  - Subdural haematoma [Not Recovered/Not Resolved]
  - Skull fracture [Not Recovered/Not Resolved]
  - Paraplegia [Not Recovered/Not Resolved]
  - Delirium febrile [Unknown]
  - Fall [Unknown]
  - Foot fracture [Not Recovered/Not Resolved]
  - Dislocation of vertebra [Not Recovered/Not Resolved]
  - Coma [Unknown]
  - Skull fractured base [Not Recovered/Not Resolved]
  - Spinal cord injury [Not Recovered/Not Resolved]
  - Pulmonary contusion [Not Recovered/Not Resolved]

NARRATIVE: CASE EVENT DATE: 2020
